FAERS Safety Report 15906568 (Version 1)
Quarter: 2019Q1

REPORT INFORMATION
  Report Type: Spontaneous
  Country: US (occurrence: US)
  Receive Date: 20190204
  Receipt Date: 20190204
  Transmission Date: 20190417
  Serious: No
  Sender: FDA-Public Use
  Company Number: None

PATIENT
  Age: 8 Year
  Sex: Female
  Weight: 22.5 kg

DRUGS (3)
  1. CBD OIL [Concomitant]
     Active Substance: CANNABIDIOL\HERBALS
  2. HUMIRA [Suspect]
     Active Substance: ADALIMUMAB
     Indication: JUVENILE IDIOPATHIC ARTHRITIS
     Dosage: ?          OTHER FREQUENCY:ONCE PER TWO WEEKS;?
     Route: 030
     Dates: start: 20190116, end: 20190204
  3. BACTRIM [Concomitant]
     Active Substance: SULFAMETHOXAZOLE\TRIMETHOPRIM

REACTIONS (7)
  - Mood altered [None]
  - Defiant behaviour [None]
  - Screaming [None]
  - Anger [None]
  - Aggression [None]
  - Personality change [None]
  - Pain [None]

NARRATIVE: CASE EVENT DATE: 20190201
